FAERS Safety Report 23065370 (Version 3)
Quarter: 2024Q1

REPORT INFORMATION
  Report Type: Spontaneous
  Country: US (occurrence: US)
  Receive Date: 20231013
  Receipt Date: 20240118
  Transmission Date: 20240409
  Serious: No
  Sender: FDA-Public Use
  Company Number: US-PFIZER INC-202300323811

PATIENT
  Age: 80 Year
  Sex: Female
  Weight: 57.61 kg

DRUGS (2)
  1. HYDROCORTISONE ACETATE [Suspect]
     Active Substance: HYDROCORTISONE ACETATE
     Indication: Pruritus
     Dosage: UNK, (CORTISONE 10, 1% HYDROCORTISONE ANTI ITCH CREAM WITH ALOE)
  2. HYDROCORTISONE ACETATE [Suspect]
     Active Substance: HYDROCORTISONE ACETATE
     Indication: Erythema

REACTIONS (1)
  - Drug ineffective [Unknown]
